FAERS Safety Report 5085653-X (Version None)
Quarter: 2006Q3

REPORT INFORMATION
  Report Type: 
  Country: None (occurrence: None)
  Receive Date: 20060817
  Receipt Date: 20060731
  Transmission Date: 20061208
  Serious: Yes (Other)
  Sender: FDA-Public Use
  Company Number: CHPA2006US07461

PATIENT
  Age: 44 Year
  Sex: Male
  Weight: 104.3 kg

DRUGS (5)
  1. NICOTINE [Suspect]
     Indication: SMOKING CESSATION THERAPY
     Dosage: 21 MG, QD, TRANSDERMAL
     Route: 062
  2. WALLGREEN'S (NCH) (NICOTINE) [Suspect]
     Indication: SMOKING CESSATION THERAPY
     Dosage: 14 MG, QD, TRANSDERMAL
     Route: 062
  3. PRIMATENE                    (EPINEPHRINE) [Concomitant]
  4. MUCINEX [Concomitant]
  5. SINGULAIR [Concomitant]

REACTIONS (7)
  - ANXIETY [None]
  - CHRONIC OBSTRUCTIVE PULMONARY DISEASE [None]
  - COUGH [None]
  - INAPPROPRIATE SCHEDULE OF DRUG ADMINISTRATION [None]
  - NICOTINE DEPENDENCE [None]
  - SINUS CONGESTION [None]
  - TREATMENT NONCOMPLIANCE [None]
